FAERS Safety Report 5156068-0 (Version None)
Quarter: 2006Q4

REPORT INFORMATION
  Report Type: 
  Country: None (occurrence: None)
  Receive Date: 20061122
  Receipt Date: 20061024
  Transmission Date: 20070319
  Serious: Yes (Other)
  Sender: FDA-Public Use
  Company Number: PHNR2006AU01468

PATIENT
  Age: 25 Year
  Sex: Male

DRUGS (4)
  1. OLANZAPINE [Suspect]
     Dosage: 30 MG DAILY AT NIGHTIME
     Route: 048
     Dates: start: 20050101, end: 20061024
  2. CLOZARIL [Suspect]
     Indication: SCHIZOPHRENIA
     Dosage: 12.5-250 MG
     Route: 048
     Dates: start: 20010119, end: 20020117
  3. CLOZARIL [Suspect]
     Dosage: 137.5 MG, QD
     Dates: start: 20061010
  4. CLOZARIL [Suspect]
     Dosage: 25-225 MG AT NIGHTIME
     Route: 048
     Dates: start: 20061025

REACTIONS (5)
  - ALANINE AMINOTRANSFERASE INCREASED [None]
  - ASPARTATE AMINOTRANSFERASE INCREASED [None]
  - DRUG INTERACTION [None]
  - GAMMA-GLUTAMYLTRANSFERASE INCREASED [None]
  - HEPATIC FUNCTION ABNORMAL [None]
